FAERS Safety Report 5933645-8 (Version None)
Quarter: 2008Q4

REPORT INFORMATION
  Report Type: 
  Country: None (occurrence: None)
  Receive Date: 20081024
  Receipt Date: 20081008
  Transmission Date: 20090506
  Serious: Yes (Other)
  Sender: FDA-Public Use
  Company Number: 2008S1000448

PATIENT
  Age: 52 Year
  Sex: Female

DRUGS (4)
  1. ACITRETIN [Suspect]
     Indication: PSORIASIS
     Dosage: 25 MG;QD;PO
     Route: 048
     Dates: start: 20040101, end: 20080401
  2. RIMONABANT (RIMONABANT) [Suspect]
     Indication: OBESITY
     Dosage: 20 MG
     Dates: start: 20080301, end: 20080401
  3. HYDROCHLOROTHIAZIDE [Concomitant]
  4. DESMIN [Concomitant]

REACTIONS (4)
  - ALANINE AMINOTRANSFERASE INCREASED [None]
  - ASPARTATE AMINOTRANSFERASE INCREASED [None]
  - DRUG INTERACTION [None]
  - TRANSAMINASES INCREASED [None]
